FAERS Safety Report 6937346-9 (Version None)
Quarter: 2010Q3

REPORT INFORMATION
  Report Type: 
  Country: None (occurrence: None)
  Receive Date: 20100823
  Receipt Date: 20100813
  Transmission Date: 20110219
  Serious: Yes (Life-Threatening, Other)
  Sender: FDA-Public Use
  Company Number: US-BAXTER-2010BH017799

PATIENT
  Age: 31 Year
  Sex: Female
  Weight: 128 kg

DRUGS (8)
  1. OXYTOCIN [Suspect]
     Indication: LABOUR INDUCTION
     Route: 042
     Dates: start: 20100604, end: 20100605
  2. MORPHINE EPIDURAL ^PHARMACIA + UPJOHN^ [Concomitant]
     Indication: PAIN MANAGEMENT
     Route: 042
     Dates: start: 20100604, end: 20100605
  3. MORPHINE EPIDURAL ^PHARMACIA + UPJOHN^ [Concomitant]
     Indication: PRODUCT USED FOR UNKNOWN INDICATION
     Route: 065
  4. FENTANYL CITRATE [Concomitant]
     Indication: PRODUCT USED FOR UNKNOWN INDICATION
     Route: 065
  5. BUPIVACAINE HCL [Concomitant]
     Indication: PRODUCT USED FOR UNKNOWN INDICATION
     Route: 065
  6. LIDOCAINE [Concomitant]
     Indication: PRODUCT USED FOR UNKNOWN INDICATION
     Route: 065
  7. LIDOCAINE [Concomitant]
     Indication: PAIN
     Route: 042
     Dates: start: 20100604, end: 20100604
  8. PENICILLIN G [Concomitant]
     Indication: ANTI-INFECTIVE THERAPY
     Route: 042
     Dates: start: 20100604, end: 20100605

REACTIONS (2)
  - DRUG EXPOSURE DURING PREGNANCY [None]
  - POSTPARTUM HAEMORRHAGE [None]
